FAERS Safety Report 8592049-2 (Version None)
Quarter: 2012Q3

REPORT INFORMATION
  Report Type: 
  Country: None (occurrence: None)
  Receive Date: 20120814
  Receipt Date: 20120806
  Transmission Date: 20120928
  Serious: Yes (Other)
  Sender: FDA-Public Use
  Company Number: JP-ASTELLAS-2012JP007504

PATIENT
  Sex: Female

DRUGS (1)
  1. PROGRAF [Suspect]
     Indication: MIXED CONNECTIVE TISSUE DISEASE
     Dosage: 3 MG, UID/QD
     Route: 048

REACTIONS (3)
  - DEHYDRATION [None]
  - OFF LABEL USE [None]
  - RENAL DISORDER [None]
